FAERS Safety Report 23546092 (Version 2)
Quarter: 2024Q1

REPORT INFORMATION
  Report Type: Report from Study
  Country: US (occurrence: US)
  Receive Date: 20240220
  Receipt Date: 20240307
  Transmission Date: 20240410
  Serious: Yes (Hospitalization)
  Sender: FDA-Public Use
  Company Number: US-Eisai-EC-2024-159478

PATIENT
  Age: 59 Year
  Sex: Female

DRUGS (2)
  1. LENVIMA [Suspect]
     Active Substance: LENVATINIB
     Indication: Hepatic cancer
     Route: 048
     Dates: start: 20240122
  2. LENVIMA [Suspect]
     Active Substance: LENVATINIB
     Route: 048

REACTIONS (4)
  - Malnutrition [Unknown]
  - Dehydration [Unknown]
  - Asthenia [Recovering/Resolving]
  - Hepatotoxicity [Unknown]

NARRATIVE: CASE EVENT DATE: 20240101
